FAERS Safety Report 17431119 (Version 2)
Quarter: 2020Q2

REPORT INFORMATION
  Report Type: Spontaneous
  Country: ES (occurrence: ES)
  Receive Date: 20200218
  Receipt Date: 20200605
  Transmission Date: 20200713
  Serious: Yes (Hospitalization, Other)
  Sender: FDA-Public Use
  Company Number: ES-ELI_LILLY_AND_COMPANY-ES202002004582

PATIENT
  Age: 28 Year
  Sex: Male

DRUGS (5)
  1. CYCLOSPORINE. [Concomitant]
     Active Substance: CYCLOSPORINE
     Indication: DERMATITIS ATOPIC
     Dosage: UNK, UNKNOWN
     Route: 065
  2. METHOTREXATE. [Concomitant]
     Active Substance: METHOTREXATE
     Indication: DERMATITIS ATOPIC
     Dosage: UNK, UNKNOWN
     Route: 065
  3. OLUMIANT [Suspect]
     Active Substance: BARICITINIB
     Indication: DERMATITIS ATOPIC
     Dosage: 4 MG, DAILY
     Route: 065
     Dates: start: 20191031, end: 20191213
  4. EBASTINE [Concomitant]
     Active Substance: EBASTINE
     Indication: DERMATITIS ATOPIC
     Dosage: UNK, PRN
     Route: 065
  5. POLARAMINE [Concomitant]
     Active Substance: DEXCHLORPHENIRAMINE MALEATE
     Indication: DERMATITIS ATOPIC
     Dosage: UNK, PRN
     Route: 065

REACTIONS (8)
  - Erythrodermic atopic dermatitis [Unknown]
  - Thrombocytosis [Unknown]
  - Eosinophil count increased [Unknown]
  - Neutropenia [Unknown]
  - Lymphocytosis [Unknown]
  - Eczema [Unknown]
  - Lichenification [Unknown]
  - Chills [Unknown]

NARRATIVE: CASE EVENT DATE: 20191220
